FAERS Safety Report 26215550 (Version 1)
Quarter: 2025Q4

REPORT INFORMATION
  Report Type: Spontaneous
  Country: US (occurrence: US)
  Receive Date: 20251231
  Receipt Date: 20251231
  Transmission Date: 20260118
  Serious: No
  Sender: ABBVIE
  Company Number: US-ABBVIE-6608373

PATIENT
  Sex: Female

DRUGS (2)
  1. CARBIDOPA LEVODOPA [Suspect]
     Active Substance: CARBIDOPA\LEVODOPA
     Indication: Parkinson^s disease
     Route: 050
  2. CARBIDOPA LEVODOPA [Suspect]
     Active Substance: CARBIDOPA\LEVODOPA

REACTIONS (7)
  - Drug hypersensitivity [Unknown]
  - General physical health deterioration [Unknown]
  - Constipation [Unknown]
  - Dyspepsia [Unknown]
  - Pain [Unknown]
  - Stress [Unknown]
  - Tremor [Unknown]
